FAERS Safety Report 15431336 (Version 1)
Quarter: 2018Q3

REPORT INFORMATION
  Report Type: Spontaneous
  Country: FR (occurrence: FR)
  Receive Date: 20180926
  Receipt Date: 20180926
  Transmission Date: 20181010
  Serious: Yes (Death)
  Sender: FDA-Public Use
  Company Number: FR-MYLANLABS-2018M1069811

PATIENT
  Age: 23 Year
  Sex: Female
  Weight: 48 kg

DRUGS (4)
  1. RISPERDAL [Suspect]
     Active Substance: RISPERIDONE
     Indication: PSYCHOTIC DISORDER
     Dosage: 4 MG, QD
     Route: 048
     Dates: start: 20180330, end: 20180331
  2. LOXAPAC                            /00401802/ [Suspect]
     Active Substance: LOXAPINE SUCCINATE
     Indication: PSYCHOTIC DISORDER
     Dosage: 195 GTT, QD
     Route: 048
     Dates: start: 20180324, end: 20180401
  3. ARIPIPRAZOLE. [Suspect]
     Active Substance: ARIPIPRAZOLE
     Indication: PSYCHOTIC DISORDER
     Dosage: 10 MG, QD
     Route: 048
     Dates: start: 20180328, end: 20180328
  4. THERALENE [Suspect]
     Active Substance: TRIMEPRAZINE
     Indication: PSYCHOTIC DISORDER
     Route: 048
     Dates: start: 20180318, end: 20180401

REACTIONS (2)
  - Death [Fatal]
  - Intestinal ischaemia [Fatal]

NARRATIVE: CASE EVENT DATE: 20180331
